FAERS Safety Report 5101408-1 (Version None)
Quarter: 2006Q3

REPORT INFORMATION
  Report Type: 
  Country: None (occurrence: None)
  Receive Date: 20060911
  Receipt Date: 20060908
  Transmission Date: 20061208
  Serious: Yes (Hospitalization)
  Sender: FDA-Public Use
  Company Number: US-GLAXOSMITHKLINE-A0619575A

PATIENT
  Age: 2 Year
  Sex: Male

DRUGS (2)
  1. LAMICTAL [Suspect]
     Indication: EPILEPSY
     Route: 048
     Dates: start: 20011101, end: 20020101
  2. FOSPHENYTOIN SODIUM [Concomitant]

REACTIONS (5)
  - CONVULSION [None]
  - DEVELOPMENTAL DELAY [None]
  - LEARNING DISORDER [None]
  - MOOD ALTERED [None]
  - OVERDOSE [None]
